FAERS Safety Report 7729927-X (Version None)
Quarter: 2011Q3

REPORT INFORMATION
  Report Type: 
  Country: None (occurrence: None)
  Receive Date: 20110906
  Receipt Date: 20110823
  Transmission Date: 20111222
  Serious: Yes (Hospitalization, Other)
  Sender: FDA-Public Use
  Company Number: PHHY2011SG71047

PATIENT
  Sex: Male

DRUGS (2)
  1. GLEEVEC [Suspect]
     Indication: GASTROINTESTINAL STROMAL TUMOUR
     Dosage: 400 MG, DAILY
     Dates: start: 20110601
  2. DIURETICS [Concomitant]
     Dosage: UNK UKN, UNK

REACTIONS (4)
  - ASCITES [None]
  - HERNIA [None]
  - METASTASES TO LIVER [None]
  - PAIN [None]
